FAERS Safety Report 7607404-4 (Version None)
Quarter: 2011Q3

REPORT INFORMATION
  Report Type: 
  Country: None (occurrence: None)
  Receive Date: 20110713
  Receipt Date: 20110705
  Transmission Date: 20111222
  Serious: Yes (Other)
  Sender: FDA-Public Use
  Company Number: US-ASTRAZENECA-2011SE40054

PATIENT
  Sex: Male

DRUGS (1)
  1. TOPROL-XL [Suspect]
     Indication: ANGINA PECTORIS
     Route: 048
     Dates: start: 20110630

REACTIONS (3)
  - DRUG INEFFECTIVE [None]
  - CORONARY ARTERY RESTENOSIS [None]
  - ANGINA PECTORIS [None]
